FAERS Safety Report 8941651 (Version 1)
Quarter: 2012Q4

REPORT INFORMATION
  Report Type: 
  Country: US (occurrence: US)
  Receive Date: 20121203
  Receipt Date: 20121203
  Transmission Date: 20130627
  Serious: No
  Sender: FDA-Public Use
  Company Number: US-PFIZER INC-2012299232

PATIENT
  Age: 58 Year
  Sex: Female
  Weight: 59 kg

DRUGS (3)
  1. PREMPRO [Suspect]
     Indication: HOT FLASHES
     Dosage: 0.625/2.5 mg, daily
     Dates: start: 2002
  2. PREMPRO [Suspect]
     Indication: NIGHT SWEATS
  3. ZOMIG [Concomitant]
     Indication: MIGRAINE
     Dosage: 5mg/2x/week or 2x/month, as needed

REACTIONS (1)
  - Nasopharyngitis [Not Recovered/Not Resolved]
